FAERS Safety Report 11217347 (Version 2)
Quarter: 2015Q3

REPORT INFORMATION
  Report Type: Spontaneous
  Country: IT (occurrence: IT)
  Receive Date: 20150625
  Receipt Date: 20150813
  Transmission Date: 20151125
  Serious: Yes (Death, Other)
  Sender: FDA-Public Use
  Company Number: IT-ROCHE-1597746

PATIENT
  Age: 65 Year
  Sex: Female

DRUGS (23)
  1. RITONAVIR. [Suspect]
     Active Substance: RITONAVIR
     Route: 048
     Dates: start: 20150521, end: 20150527
  2. DASABUVIR [Suspect]
     Active Substance: DASABUVIR
     Route: 048
     Dates: start: 20150521, end: 20150527
  3. TENORMIN [Concomitant]
     Active Substance: ATENOLOL
     Indication: HYPERTENSION
     Dosage: PERIOD- 1 YEAR?HALF TABLET X2/DAY
     Route: 048
  4. ZYLORIC [Concomitant]
     Active Substance: ALLOPURINOL
     Indication: HYPERURICAEMIA
     Dosage: PERIOD- 1 YEAR
     Route: 048
  5. LYRICA [Concomitant]
     Active Substance: PREGABALIN
     Indication: NEURALGIA
     Route: 048
     Dates: start: 20150403, end: 20150509
  6. TARGOSID [Concomitant]
     Active Substance: TEICOPLANIN
     Indication: STREPTOCOCCAL SEPSIS
  7. TIROSINT [Concomitant]
     Active Substance: LEVOTHYROXINE SODIUM
     Indication: HYPOTHYROIDISM
     Dosage: PERIOD- 1 YEAR
     Route: 048
  8. URBASON [Concomitant]
     Active Substance: METHYLPREDNISOLONE
     Indication: PERICARDIAL EFFUSION
     Route: 065
     Dates: start: 20150507, end: 20150528
  9. OMBITASVIR [Suspect]
     Active Substance: OMBITASVIR
     Route: 048
     Dates: start: 20150521, end: 20150527
  10. DASABUVIR [Suspect]
     Active Substance: DASABUVIR
     Indication: CHRONIC HEPATITIS C
     Route: 048
     Dates: start: 20150505, end: 20150517
  11. COLCHICINA [Suspect]
     Active Substance: COLCHICINE
     Indication: PERICARDIAL EFFUSION
     Route: 048
     Dates: start: 20150429, end: 20150507
  12. DEURSIL [Concomitant]
     Active Substance: URSODIOL
     Indication: CHOLESTASIS
     Dosage: PERIOD- 1 YEAR
     Route: 048
  13. OMBITASVIR [Suspect]
     Active Substance: OMBITASVIR
     Indication: CHRONIC HEPATITIS C
     Route: 048
     Dates: start: 20150505, end: 20150517
  14. NEXIUM [Concomitant]
     Active Substance: ESOMEPRAZOLE MAGNESIUM
     Indication: PROPHYLAXIS AGAINST GASTROINTESTINAL ULCER
     Dosage: PERIOD- 1 YEAR
     Route: 048
  15. COPEGUS [Suspect]
     Active Substance: RIBAVIRIN
     Indication: CHRONIC HEPATITIS C
     Route: 048
     Dates: start: 20150505, end: 20150509
  16. PARITAPREVIR [Suspect]
     Active Substance: PARITAPREVIR
     Route: 048
     Dates: start: 20150521, end: 20150527
  17. RITONAVIR. [Suspect]
     Active Substance: RITONAVIR
     Indication: CHRONIC HEPATITIS C
     Route: 048
     Dates: start: 20150505, end: 20150517
  18. VENACTONE [Concomitant]
     Indication: ASCITES
     Route: 042
     Dates: start: 20150404, end: 20150511
  19. TARGOSID [Concomitant]
     Active Substance: TEICOPLANIN
     Indication: INFECTED SKIN ULCER
     Dosage: 1 VIAL/ALTERNATING DAYS
     Route: 042
     Dates: start: 20150420, end: 20150512
  20. PARITAPREVIR [Suspect]
     Active Substance: PARITAPREVIR
     Indication: CHRONIC HEPATITIS C
     Route: 048
     Dates: start: 20150505, end: 20150517
  21. QUESTRAN [Concomitant]
     Active Substance: CHOLESTYRAMINE
     Indication: CHOLESTATIC PRURITUS
     Dosage: PERIOD- 1 YEAR
     Route: 048
  22. NORVASC [Concomitant]
     Active Substance: AMLODIPINE BESYLATE
     Indication: HYPERTENSION
     Dosage: PERIOD- 1 YEAR
     Route: 048
  23. LASIX [Concomitant]
     Active Substance: FUROSEMIDE
     Indication: ASCITES
     Route: 042
     Dates: start: 20150404, end: 20150509

REACTIONS (2)
  - Melaena [Fatal]
  - Diarrhoea [Recovered/Resolved]

NARRATIVE: CASE EVENT DATE: 20150506
